FAERS Safety Report 4361587-0 (Version None)
Quarter: 2004Q2

REPORT INFORMATION
  Report Type: 
  Country: None (occurrence: None)
  Receive Date: 20040517
  Receipt Date: 20040430
  Transmission Date: 20050107
  Serious: Yes (Other)
  Sender: FDA-Public Use
  Company Number: DEU-2004-0000822

PATIENT
  Age: 32 Year
  Sex: Female
  Weight: 73 kg

DRUGS (3)
  1. MORPHINE SULFATE [Suspect]
     Indication: SPINAL ANAESTHESIA
     Dosage: 0.2 MG, SINGLE
  2. RISPERDAL [Suspect]
     Dosage: 8 MG, HS,
  3. LITHIUM (LITHIUM) [Concomitant]

REACTIONS (4)
  - DRUG EXPOSURE DURING PREGNANCY [None]
  - DRUG INTERACTION [None]
  - HEART RATE INCREASED [None]
  - HYPOTENSION [None]
